FAERS Safety Report 12994602 (Version 3)
Quarter: 2016Q4

REPORT INFORMATION
  Report Type: Spontaneous
  Country: JP (occurrence: JP)
  Receive Date: 20161202
  Receipt Date: 20161220
  Transmission Date: 20170207
  Serious: Yes (Other)
  Sender: FDA-Public Use
  Company Number: PHJP2016JP034930

PATIENT
  Age: 50 Year
  Sex: Female

DRUGS (1)
  1. ZOMETA [Suspect]
     Active Substance: ZOLEDRONIC ACID
     Indication: METASTASES TO BONE
     Dosage: 4 MG (A TOTAL OF 81 TIMES), UNK
     Route: 042
     Dates: start: 200703, end: 201302

REACTIONS (4)
  - Bone disorder [Unknown]
  - Primary sequestrum [Unknown]
  - Osteonecrosis of jaw [Not Recovered/Not Resolved]
  - Loose tooth [Unknown]

NARRATIVE: CASE EVENT DATE: 20110624
